FAERS Safety Report 11342044 (Version 1)
Quarter: 2015Q3

REPORT INFORMATION
  Report Type: Report from Study
  Country: BR (occurrence: BR)
  Receive Date: 20150805
  Receipt Date: 20150805
  Transmission Date: 20151125
  Serious: Yes (Hospitalization)
  Sender: FDA-Public Use
  Company Number: BR-ABBVIE-15P-020-1437591-00

PATIENT
  Age: 66 Year
  Sex: Female
  Weight: 81 kg

DRUGS (12)
  1. IRON [Concomitant]
     Active Substance: IRON
     Indication: ANAEMIA
     Route: 048
     Dates: start: 2011
  2. OMEPRAZOLE. [Concomitant]
     Active Substance: OMEPRAZOLE
     Indication: GASTRIC DISORDER
     Route: 048
     Dates: start: 2011
  3. EUTHYROX [Concomitant]
     Active Substance: LEVOTHYROXINE SODIUM
     Indication: THYROID DISORDER
     Route: 048
     Dates: start: 2005
  4. GABAPENTIN. [Concomitant]
     Active Substance: GABAPENTIN
     Indication: OSTEOARTHRITIS
     Route: 048
     Dates: start: 2005
  5. HUMIRA [Suspect]
     Active Substance: ADALIMUMAB
     Indication: ANKYLOSING SPONDYLITIS
     Route: 058
     Dates: start: 20140509, end: 201507
  6. DOBEVEN [Concomitant]
     Indication: OSTEOARTHRITIS
     Route: 048
     Dates: start: 2012
  7. VELIJA [Concomitant]
     Active Substance: DULOXETINE HYDROCHLORIDE
     Indication: DEPRESSION
     Route: 048
     Dates: start: 2007
  8. DONAREN [Concomitant]
     Active Substance: TRAZODONE HYDROCHLORIDE
     Indication: INSOMNIA
     Route: 048
     Dates: start: 2014
  9. METHADONE HYDROCHLORIDE. [Concomitant]
     Active Substance: METHADONE HYDROCHLORIDE
     Indication: OSTEOARTHRITIS
     Route: 048
     Dates: start: 2014
  10. CHOLECALCIFEROL [Concomitant]
     Active Substance: CHOLECALCIFEROL
     Indication: ANAEMIA
     Route: 048
     Dates: start: 2013
  11. HUMIRA [Suspect]
     Active Substance: ADALIMUMAB
     Route: 058
  12. LEXAPRO [Concomitant]
     Active Substance: ESCITALOPRAM OXALATE
     Indication: DEPRESSION
     Route: 048
     Dates: start: 2014

REACTIONS (1)
  - Depression [Recovered/Resolved]

NARRATIVE: CASE EVENT DATE: 201507
